FAERS Safety Report 7747587-9 (Version None)
Quarter: 2011Q3

REPORT INFORMATION
  Report Type: 
  Country: None (occurrence: None)
  Receive Date: 20110913
  Receipt Date: 20110831
  Transmission Date: 20111222
  Serious: Yes (Hospitalization)
  Sender: FDA-Public Use
  Company Number: GT-ELI_LILLY_AND_COMPANY-GT201109000257

PATIENT
  Age: 90 Year
  Sex: Female

DRUGS (4)
  1. EXELON [Concomitant]
     Indication: DEMENTIA ALZHEIMER'S TYPE
     Dosage: 5 DF, QD
  2. EXELON [Concomitant]
     Dosage: 10 DF, UNKNOWN
     Dates: end: 20110301
  3. EXELON [Concomitant]
     Dosage: 10 DF, QD
  4. CYMBALTA [Suspect]
     Indication: DEPRESSION
     Dosage: 60 MG, QD
     Route: 048
     Dates: start: 20101201, end: 20110301

REACTIONS (1)
  - INTESTINAL OBSTRUCTION [None]
